FAERS Safety Report 12805952 (Version 1)
Quarter: 2016Q4

REPORT INFORMATION
  Report Type: Spontaneous
  Country: US (occurrence: US)
  Receive Date: 20161004
  Receipt Date: 20161004
  Transmission Date: 20170207
  Serious: No
  Sender: FDA-Public Use
  Company Number: US-PFIZER INC-2016459040

PATIENT
  Age: 72 Year
  Sex: Male
  Weight: 86.18 kg

DRUGS (3)
  1. ENALAPRILAT. [Suspect]
     Active Substance: ENALAPRILAT
     Dosage: 10 MG, 2X/DAY
     Route: 048
  2. ENALAPRILAT. [Suspect]
     Active Substance: ENALAPRILAT
     Dosage: 10 MG, 1X/DAY
     Route: 048
  3. SPIRONOLACTONE. [Suspect]
     Active Substance: SPIRONOLACTONE
     Indication: FLUID RETENTION
     Dosage: 25 MG, 1X/DAY
     Route: 048
     Dates: end: 20160601

REACTIONS (1)
  - Blood pressure decreased [Unknown]
